FAERS Safety Report 4478905-5 (Version None)
Quarter: 2004Q4

REPORT INFORMATION
  Report Type: 
  Country: None (occurrence: None)
  Receive Date: 20041018
  Receipt Date: 20041005
  Transmission Date: 20050328
  Serious: Yes (Hospitalization, Other)
  Sender: FDA-Public Use
  Company Number: 2004S1002988

PATIENT
  Age: 57 Year
  Sex: Male
  Weight: 102.0593 kg

DRUGS (4)
  1. VERAPAMIL HCL [Suspect]
     Indication: SUPRAVENTRICULAR TACHYCARDIA
     Dosage: 240 MG X 1, ORAL
     Route: 048
     Dates: start: 20020101, end: 20020101
  2. VERAPAMIL HYDROCHLORIDE [Suspect]
     Indication: SUPRAVENTRICULAR TACHYCARDIA
     Dosage: 180 MG HS, ORAL
     Route: 048
     Dates: start: 20020101
  3. VERAPAMIL HYDROCHLORIDE EXTENDED RELEASE TABLETS 120 MG [Suspect]
     Indication: SUPRAVENTRICULAR TACHYCARDIA
     Dosage: 120 MG HS, ORAL
     Route: 048
  4. ASPIRIN [Concomitant]

REACTIONS (6)
  - ANGINA PECTORIS [None]
  - ASTHENIA [None]
  - DISCOMFORT [None]
  - DIZZINESS [None]
  - FATIGUE [None]
  - NAUSEA [None]
